FAERS Safety Report 7453057-8 (Version None)
Quarter: 2011Q2

REPORT INFORMATION
  Report Type: 
  Country: None (occurrence: None)
  Receive Date: 20110502
  Receipt Date: 20101222
  Transmission Date: 20111010
  Serious: No
  Sender: FDA-Public Use
  Company Number: US-ASTRAZENECA-2010SE60452

PATIENT
  Sex: Female

DRUGS (8)
  1. NEXIUM [Suspect]
     Indication: GASTROOESOPHAGEAL REFLUX DISEASE
     Route: 048
  2. PRAVASTATIN [Concomitant]
  3. VITAMIN E [Concomitant]
  4. LISINOPRIL AND HYDROCHLOROTHIAZIDE [Concomitant]
  5. ALLEGRA [Concomitant]
  6. FOLIC ACID [Concomitant]
  7. BYSTOLIC [Concomitant]
  8. COD LIVER OIL [Concomitant]

REACTIONS (2)
  - DRUG DOSE OMISSION [None]
  - DISCOMFORT [None]
